FAERS Safety Report 21158626 (Version 1)
Quarter: 2022Q3

REPORT INFORMATION
  Report Type: Spontaneous
  Country: CN (occurrence: CN)
  Receive Date: 20220802
  Receipt Date: 20220802
  Transmission Date: 20221027
  Serious: Yes (Other)
  Sender: FDA-Public Use
  Company Number: CN-SUN PHARMACEUTICAL INDUSTRIES LTD-2022R1-346451

PATIENT
  Age: 56 Year
  Sex: Male

DRUGS (6)
  1. CISPLATIN [Suspect]
     Active Substance: CISPLATIN
     Indication: Metastatic squamous cell carcinoma
     Dosage: 75 MILLIGRAM/SQ. METER, Q3W, 2 CYCLES
     Route: 065
     Dates: start: 20180908
  2. CISPLATIN [Suspect]
     Active Substance: CISPLATIN
     Dosage: 2 CYCLES
     Route: 065
     Dates: start: 20181105
  3. DOCETAXEL [Suspect]
     Active Substance: DOCETAXEL
     Indication: Metastatic squamous cell carcinoma
     Dosage: 75 MILLIGRAM/SQ. METER, 2 CYCLES
     Route: 065
     Dates: start: 20180908
  4. DOCETAXEL [Suspect]
     Active Substance: DOCETAXEL
     Dosage: 2 CYCLES
     Route: 065
     Dates: start: 20181105
  5. PEMBROLIZUMAB [Suspect]
     Active Substance: PEMBROLIZUMAB
     Indication: Metastatic squamous cell carcinoma
     Dosage: 2 MILLIGRAM/KILOGRAM, Q3W, 2 CYCLES
     Route: 065
     Dates: start: 20180908
  6. PEMBROLIZUMAB [Suspect]
     Active Substance: PEMBROLIZUMAB
     Dosage: 2 CYCLES
     Route: 065
     Dates: start: 20181105

REACTIONS (1)
  - Therapy partial responder [Unknown]
